FAERS Safety Report 15239731 (Version 2)
Quarter: 2018Q3

REPORT INFORMATION
  Report Type: Spontaneous
  Country: DE (occurrence: DE)
  Receive Date: 20180731
  Receipt Date: 20180926
  Transmission Date: 20181010
  Serious: Yes (Life-Threatening, Hospitalization, Disabling)
  Sender: FDA-Public Use
  Company Number: DE-DRREDDYS-GER/GER/11/0021789

PATIENT
  Age: 80 Year
  Sex: Male
  Weight: 100 kg

DRUGS (2)
  1. ZOCOR [Suspect]
     Active Substance: SIMVASTATIN
     Indication: HYPERLIPIDAEMIA
     Route: 048
     Dates: end: 20110517
  2. DAPTOMYCIN. [Suspect]
     Active Substance: DAPTOMYCIN
     Indication: STAPHYLOCOCCAL INFECTION
     Route: 042
     Dates: start: 20110504, end: 20110517

REACTIONS (4)
  - Rhabdomyolysis [Not Recovered/Not Resolved]
  - Myoglobin blood increased [Not Recovered/Not Resolved]
  - Blood creatine phosphokinase increased [Not Recovered/Not Resolved]
  - Anuria [Not Recovered/Not Resolved]

NARRATIVE: CASE EVENT DATE: 20110516
